FAERS Safety Report 5353018-9 (Version None)
Quarter: 2007Q2

REPORT INFORMATION
  Report Type: 
  Country: None (occurrence: None)
  Receive Date: 20070606
  Receipt Date: 20070531
  Transmission Date: 20071010
  Serious: Yes (Death)
  Sender: FDA-Public Use
  Company Number: TCI2007A02522

PATIENT
  Age: 66 Year

DRUGS (1)
  1. LANSOPRAZOLE [Suspect]
     Dosage: PER ORAL
     Route: 048
     Dates: start: 20050801, end: 20060201

REACTIONS (2)
  - SEPSIS [None]
  - STEVENS-JOHNSON SYNDROME [None]
